FAERS Safety Report 8171021-0 (Version None)
Quarter: 2012Q1

REPORT INFORMATION
  Report Type: 
  Country: None (occurrence: None)
  Receive Date: 20120104
  Receipt Date: 20110915
  Transmission Date: 20120608
  Serious: No
  Sender: FDA-Public Use
  Company Number: 2011HGS-002543

PATIENT
  Age: 60 Year
  Sex: Female
  Weight: 68.0396 kg

DRUGS (10)
  1. LYRICA [Concomitant]
  2. SAVELLA [Concomitant]
  3. VITAMIN D (ERGOCALCIFEROL)(ERGOCALCIFEROL) [Concomitant]
  4. ESTRADIOL [Concomitant]
  5. PREDNISONE [Concomitant]
  6. ASACOL (MESALAZINE)(MESALAZINE [Concomitant]
  7. LODINE (ETODOLAC)(ETODOLAC) [Concomitant]
  8. IMURAN [Concomitant]
  9. BENLYSTA [Suspect]
     Dosage: 1 IN 2 WK, INTRAVENOUS DRIP
     Route: 041
     Dates: start: 20110726
  10. IMITREX (SUMATRIPTAN SUCCINATE)(SUMATRIPTAN SUCCINATE) [Concomitant]

REACTIONS (5)
  - FEELING COLD [None]
  - SYSTEMIC LUPUS ERYTHEMATOSUS [None]
  - NASOPHARYNGITIS [None]
  - COLITIS [None]
  - ALCOHOL INTOLERANCE [None]
